FAERS Safety Report 4744590-8 (Version None)
Quarter: 2005Q3

REPORT INFORMATION
  Report Type: 
  Country: None (occurrence: None)
  Receive Date: 20050808
  Receipt Date: 20041005
  Transmission Date: 20060218
  Serious: Yes (Hospitalization, Other)
  Sender: FDA-Public Use
  Company Number: US-JNJFOC-20041001596

PATIENT
  Age: 15 Year
  Sex: Female

DRUGS (1)
  1. EXTRA STRENGTH TYLENOL [Suspect]
     Indication: INTENTIONAL MISUSE
     Dosage: 35000 MG, 1 IN 1 TOTAL, ORAL
     Route: 048
     Dates: start: 20040201, end: 20040201

REACTIONS (3)
  - INTENTIONAL MISUSE [None]
  - LIVER DISORDER [None]
  - VOMITING [None]
